FAERS Safety Report 23778595 (Version 2)
Quarter: 2024Q2

REPORT INFORMATION
  Report Type: Report from Study
  Country: US (occurrence: US)
  Receive Date: 20240424
  Receipt Date: 20240612
  Transmission Date: 20240716
  Serious: Yes (Hospitalization, Other)
  Sender: FDA-Public Use
  Company Number: US-JNJFOC-20240445100

PATIENT
  Age: 15 Year
  Sex: Male
  Weight: 106.69 kg

DRUGS (15)
  1. SPRAVATO [Suspect]
     Active Substance: ESKETAMINE
     Indication: Depression
     Dosage: ^^56 MG, 17 TOTAL DOSES^^
     Dates: start: 20230308, end: 20230622
  2. SPRAVATO [Suspect]
     Active Substance: ESKETAMINE
     Indication: Suicidal ideation
     Dosage: ^^84 MG, 1 TOTAL DOSE^^
     Dates: start: 20230705, end: 20230705
  3. SPRAVATO [Suspect]
     Active Substance: ESKETAMINE
     Indication: Major depression
     Dosage: ^^56 MG, 3 TOTAL DOSES^^
     Dates: start: 20230714, end: 20230727
  4. SPRAVATO [Suspect]
     Active Substance: ESKETAMINE
     Dosage: ^^84 MG, 20 TOTAL DOSES^^
     Dates: start: 20230803, end: 20240215
  5. ALBUTEROL SULFATE [Concomitant]
     Active Substance: ALBUTEROL SULFATE
     Indication: Dyspnoea
     Dosage: ALBUTEROL SULFATE HFA 108 (90 BASE):  INHALE 2 PUFFS BY MOUTH 30 MINUTES BEFORE ACTIVITY FOR SHORTN
  6. BUSPIRONE [Concomitant]
     Active Substance: BUSPIRONE HYDROCHLORIDE
     Indication: Prophylaxis
  7. DEPLIN [LEVOMEFOLIC ACID] [Concomitant]
     Dosage: 15 MG-90.314 MG CAPSULE
     Route: 048
  8. DESVENLAFAXINE SUCCINATE [Concomitant]
     Active Substance: DESVENLAFAXINE SUCCINATE
     Dosage: 2 TABLETS BY MOUTH AT BEDTIME
     Route: 048
  9. DOXEPIN [Concomitant]
     Active Substance: DOXEPIN
     Indication: Insomnia
     Dosage: 1 CAPSULE BY MOUTH DAILY AT BEDTIME
     Route: 048
  10. DOXEPIN [Concomitant]
     Active Substance: DOXEPIN
     Indication: Panic attack
     Dosage: 1 CAPSULE BY MOUTH DAILY AT BEDTIME
     Route: 048
  11. LITHIUM CARBONATE [Concomitant]
     Active Substance: LITHIUM CARBONATE
  12. LITHIUM CARBONATE [Concomitant]
     Active Substance: LITHIUM CARBONATE
  13. PROPRANOLOL HYDROCHLORIDE [Concomitant]
     Active Substance: PROPRANOLOL HYDROCHLORIDE
     Indication: Anxiety
     Dosage: 1 /2 TABLET BY MOUTH TWICE DAILY AS NEEDED
     Route: 048
  14. PROPRANOLOL HYDROCHLORIDE [Concomitant]
     Active Substance: PROPRANOLOL HYDROCHLORIDE
     Indication: Social anxiety disorder
     Dosage: 0.5-1 TAB 1 HOUR: MAX THREE TIMES DAILY- PRIOR TO PERFORMANCE OR PUBLIC SPEAKING
     Route: 048
  15. VRAYLAR [Concomitant]
     Active Substance: CARIPRAZINE

REACTIONS (3)
  - Suicidal ideation [Unknown]
  - Depression [Unknown]
  - Off label use [Unknown]

NARRATIVE: CASE EVENT DATE: 20230308
